FAERS Safety Report 11977005 (Version 1)
Quarter: 2016Q1

REPORT INFORMATION
  Report Type: Spontaneous
  Country: FR (occurrence: FR)
  Receive Date: 20160129
  Receipt Date: 20160129
  Transmission Date: 20160526
  Serious: Yes (Hospitalization)
  Sender: FDA-Public Use
  Company Number: FR-009507513-1601FRA009585

PATIENT
  Age: 64 Year
  Sex: Male

DRUGS (2)
  1. FIDAXOMICIN [Suspect]
     Active Substance: FIDAXOMICIN
     Indication: CLOSTRIDIUM DIFFICILE COLITIS
     Dosage: UNK
     Route: 048
  2. PROGRAF [Suspect]
     Active Substance: TACROLIMUS\TACROLIMUS ANHYDROUS
     Indication: LIVER TRANSPLANT
     Dosage: 1 MG, MORNING AND NIGHT
     Route: 048
     Dates: start: 201312

REACTIONS (7)
  - Staphylococcal sepsis [Recovered/Resolved]
  - Septic shock [Recovered/Resolved]
  - Abscess neck [Recovered/Resolved]
  - Arthritis bacterial [Recovered/Resolved]
  - Spinal cord infection [Recovered/Resolved]
  - Osteitis [Recovered/Resolved]
  - Pharyngeal abscess [Recovered/Resolved]

NARRATIVE: CASE EVENT DATE: 20140723
